FAERS Safety Report 17956166 (Version 1)
Quarter: 2020Q2

REPORT INFORMATION
  Report Type: Spontaneous
  Country: IL (occurrence: IL)
  Receive Date: 20200629
  Receipt Date: 20200629
  Transmission Date: 20200714
  Serious: Yes (Other)
  Sender: FDA-Public Use
  Company Number: IL-ROCHE-2622579

PATIENT
  Sex: Male

DRUGS (4)
  1. AVASTIN [Suspect]
     Active Substance: BEVACIZUMAB
     Indication: NEUROENDOCRINE TUMOUR
     Route: 065
     Dates: end: 2019
  2. OMEPRADEX [Concomitant]
     Active Substance: OMEPRAZOLE
     Dosage: 1 X 2 DAILY
     Route: 048
  3. FOLFIRI [Suspect]
     Active Substance: FLUOROURACIL\IRINOTECAN\LEUCOVORIN
     Indication: NEUROENDOCRINE TUMOUR
     Route: 065
     Dates: end: 2019
  4. PROLOL [PROPRANOLOL HYDROCHLORIDE] [Concomitant]
     Dosage: 1 X 2 DAILY
     Route: 048

REACTIONS (4)
  - Fatigue [Unknown]
  - Mass [Unknown]
  - Asthenia [Unknown]
  - Blood chromogranin A increased [Unknown]
